FAERS Safety Report 23663493 (Version 1)
Quarter: 2024Q1

REPORT INFORMATION
  Report Type: Spontaneous
  Country: KR (occurrence: KR)
  Receive Date: 20240322
  Receipt Date: 20240322
  Transmission Date: 20240410
  Serious: Yes (Hospitalization)
  Sender: FDA-Public Use
  Company Number: KR-JNJFOC-20240340883

PATIENT
  Age: 63 Year
  Sex: Male

DRUGS (7)
  1. INVEGA SUSTENNA [Suspect]
     Active Substance: PALIPERIDONE PALMITATE
     Indication: Delusion
     Route: 030
     Dates: start: 20190601
  2. INVEGA SUSTENNA [Suspect]
     Active Substance: PALIPERIDONE PALMITATE
  3. INVEGA SUSTENNA [Suspect]
     Active Substance: PALIPERIDONE PALMITATE
  4. AMISULPRIDE [Suspect]
     Active Substance: AMISULPRIDE
     Indication: Delusion
     Route: 065
     Dates: start: 20190601
  5. VALPROATE [Suspect]
     Active Substance: VALPROIC ACID
     Indication: Delusion
     Route: 065
     Dates: start: 20190601
  6. BENZTROPINE [Suspect]
     Active Substance: BENZTROPINE
     Indication: Delusion
     Route: 065
     Dates: start: 20190601
  7. QUETIAPINE [Concomitant]
     Active Substance: QUETIAPINE
     Dates: start: 20220101

REACTIONS (4)
  - Pneumonia [Unknown]
  - COVID-19 [Unknown]
  - Poor personal hygiene [Unknown]
  - Asthenia [Unknown]

NARRATIVE: CASE EVENT DATE: 20220101
